FAERS Safety Report 9528458 (Version 1)
Quarter: 2013Q1

REPORT INFORMATION
  Report Type: Spontaneous
  Country: US (occurrence: None)
  Receive Date: 20130329
  Receipt Date: 20130329
  Transmission Date: 20140127
  Serious: No
  Sender: FDA-Public Use
  Company Number: 1000043069

PATIENT
  Age: 73 Year
  Sex: Female

DRUGS (1)
  1. LINZESS [Suspect]
     Indication: CONSTIPATION
     Dates: start: 2013

REACTIONS (2)
  - Rectal discharge [None]
  - Off label use [None]
